FAERS Safety Report 5156987-5 (Version None)
Quarter: 2006Q4

REPORT INFORMATION
  Report Type: 
  Country: None (occurrence: None)
  Receive Date: 20061127
  Receipt Date: 20061116
  Transmission Date: 20070319
  Serious: Yes (Other)
  Sender: FDA-Public Use
  Company Number: SE-JNJFOC-20061104185

PATIENT
  Age: 17 Year
  Sex: Female

DRUGS (5)
  1. REMICADE [Suspect]
     Indication: JUVENILE ARTHRITIS
     Dosage: 3 INFUSIONS
     Route: 042
  2. PENTASA [Concomitant]
     Route: 065
  3. OMEPRAZOLE [Concomitant]
     Route: 065
  4. ISOPTO-MAXIDEX [Concomitant]
     Route: 065
  5. PREDNISOLONE [Concomitant]
     Route: 065

REACTIONS (3)
  - INFUSION RELATED REACTION [None]
  - PARAESTHESIA [None]
  - VISUAL DISTURBANCE [None]
